FAERS Safety Report 4621767-3 (Version None)
Quarter: 2005Q1

REPORT INFORMATION
  Report Type: 
  Country: None (occurrence: None)
  Receive Date: 20050329
  Receipt Date: 20050317
  Transmission Date: 20050727
  Serious: Yes (Hospitalization)
  Sender: FDA-Public Use
  Company Number: PHBS2005FI03826

PATIENT
  Age: 70 Year
  Sex: Male

DRUGS (5)
  1. LESCOL [Suspect]
     Indication: HYPERCHOLESTEROLAEMIA
     Dosage: 80 MG/DAY
     Route: 048
     Dates: start: 20040116
  2. SPORANOX [Suspect]
     Indication: ONYCHOMYCOSIS
     Dosage: 400 MG/DAY
     Route: 048
     Dates: start: 20050207, end: 20050214
  3. LOGIMAX [Concomitant]
     Indication: HYPERTENSION
     Dosage: 47.5 MG/DAY
     Route: 065
     Dates: start: 20020402
  4. ACETYLSALICYLIC ACID SRT [Concomitant]
     Dosage: 100 MG/DAY
     Route: 048
     Dates: start: 20020402
  5. NITROMEX [Concomitant]
     Dosage: PRN
     Route: 048
     Dates: start: 20020201

REACTIONS (1)
  - EPISTAXIS [None]
